FAERS Safety Report 5843662-4 (Version None)
Quarter: 2008Q3

REPORT INFORMATION
  Report Type: 
  Country: None (occurrence: None)
  Receive Date: 20080811
  Receipt Date: 20080526
  Transmission Date: 20090109
  Serious: Yes (Death, Life-Threatening, Hospitalization)
  Sender: FDA-Public Use
  Company Number: 2008AP001276

PATIENT
  Age: 31 Year
  Sex: Male

DRUGS (4)
  1. PREDNISONE [Suspect]
     Indication: IMMUNOSUPPRESSION
     Dosage: 7.5 MG; QD, 22.5 MG; QD, 7.5 MG; QD
  2. CYCLOSPORINE [Suspect]
     Indication: IMMUNOSUPPRESSION
     Dosage: 150 MG; BID, 150 MG; BID
  3. MYCOPHENOLIC ACID [Suspect]
     Indication: IMMUNOSUPPRESSION
     Dosage: 720 MG; BID, 720 MG; BID
  4. TELMISARTAN (TELMISARTAN) [Concomitant]

REACTIONS (24)
  - ABSCESS [None]
  - ACUTE RESPIRATORY FAILURE [None]
  - CENTRAL NERVOUS SYSTEM LESION [None]
  - CULTURE URINE POSITIVE [None]
  - CYTOMEGALOVIRUS COLITIS [None]
  - DECEREBRATION [None]
  - DELUSION [None]
  - GENERAL PHYSICAL HEALTH DETERIORATION [None]
  - HALLUCINATION [None]
  - HYDROCEPHALUS [None]
  - HYPOXIA [None]
  - INFARCTION [None]
  - KIDNEY TRANSPLANT REJECTION [None]
  - LOCAL SWELLING [None]
  - LUNG DISORDER [None]
  - NUCLEAR MAGNETIC RESONANCE IMAGING BRAIN ABNORMAL [None]
  - PAIN IN EXTREMITY [None]
  - PSEUDALLESCHERIA INFECTION [None]
  - PSEUDOMONAS INFECTION [None]
  - PUPIL FIXED [None]
  - PURULENT DISCHARGE [None]
  - PYREXIA [None]
  - SKIN LESION [None]
  - SYSTEMIC MYCOSIS [None]
